FAERS Safety Report 13144997 (Version 1)
Quarter: 2017Q1

REPORT INFORMATION
  Report Type: Other
  Country: NO (occurrence: NO)
  Receive Date: 20170124
  Receipt Date: 20170124
  Transmission Date: 20170428
  Serious: Yes (Other)
  Sender: FDA-Public Use
  Company Number: NO-APOTEX-2017AP005985

PATIENT
  Age: 20 Year
  Sex: Male

DRUGS (5)
  1. LITHIUM. [Concomitant]
     Active Substance: LITHIUM
     Dosage: UNK
     Dates: start: 2010
  2. EFEXOR [Suspect]
     Active Substance: VENLAFAXINE HYDROCHLORIDE
     Indication: DEPRESSION
     Dosage: UNK
     Route: 065
     Dates: end: 20160725
  3. CIPRALEX [Suspect]
     Active Substance: ESCITALOPRAM OXALATE
     Indication: PRODUCT USED FOR UNKNOWN INDICATION
     Dosage: UNK
     Route: 065
  4. SEROXAT [Suspect]
     Active Substance: PAROXETINE HYDROCHLORIDE
     Indication: DEPRESSION
     Dosage: UNK
     Route: 065
     Dates: start: 19950601
  5. CIPRAMIL                           /00582602/ [Suspect]
     Active Substance: CITALOPRAM HYDROBROMIDE
     Indication: PRODUCT USED FOR UNKNOWN INDICATION
     Dosage: UNK
     Route: 065

REACTIONS (16)
  - Disturbance in social behaviour [Unknown]
  - Restlessness [Unknown]
  - Hypomania [Unknown]
  - Mania [Unknown]
  - Drug abuse [Unknown]
  - Malaise [Unknown]
  - Memory impairment [Unknown]
  - Agitation [Unknown]
  - Personality disorder [Unknown]
  - Impaired work ability [Unknown]
  - Irritability [Unknown]
  - Quality of life decreased [Unknown]
  - Bipolar disorder [Unknown]
  - Disturbance in attention [Unknown]
  - Dizziness [Not Recovered/Not Resolved]
  - Judgement impaired [Unknown]

NARRATIVE: CASE EVENT DATE: 1995
